FAERS Safety Report 6831592-0 (Version None)
Quarter: 2010Q3

REPORT INFORMATION
  Report Type: 
  Country: None (occurrence: None)
  Receive Date: 20100712
  Receipt Date: 20100630
  Transmission Date: 20110219
  Serious: Yes (Other)
  Sender: FDA-Public Use
  Company Number: PHHY2010FR43341

PATIENT
  Age: 68 Year
  Sex: Male

DRUGS (1)
  1. CERTICAN [Suspect]
     Indication: HEART TRANSPLANT
     Dosage: 3 MG, DAILY
     Dates: start: 20100201

REACTIONS (2)
  - BLOOD GLUCOSE INCREASED [None]
  - SKIN ULCER [None]
